FAERS Safety Report 9193260 (Version 1)
Quarter: 2013Q1

REPORT INFORMATION
  Report Type: Spontaneous
  Country: US (occurrence: None)
  Receive Date: 20130325
  Receipt Date: 20130325
  Transmission Date: 20140127
  Serious: Yes (Hospitalization, Other)
  Sender: FDA-Public Use
  Company Number: None

PATIENT
  Age: 51 Year
  Sex: Male
  Weight: 97.52 kg

DRUGS (1)
  1. ADVAIR [Suspect]
     Dosage: 1 INHALATION 2/DAY, INHAL
     Route: 055
     Dates: start: 20100101, end: 20130228

REACTIONS (4)
  - Lung disorder [None]
  - Sputum increased [None]
  - Sputum discoloured [None]
  - Infection [None]
